FAERS Safety Report 4588469-3 (Version None)
Quarter: 2005Q1

REPORT INFORMATION
  Report Type: 
  Country: None (occurrence: None)
  Receive Date: 20050222
  Receipt Date: 20050210
  Transmission Date: 20050727
  Serious: Yes (Hospitalization)
  Sender: FDA-Public Use
  Company Number: FI-BRISTOL-MYERS SQUIBB COMPANY-12856894

PATIENT
  Age: 38 Year
  Sex: Male

DRUGS (8)
  1. ABILIFY [Suspect]
     Indication: DELUSION
     Route: 048
     Dates: start: 20031101
  2. LAMICTAL [Suspect]
     Dates: start: 20030201
  3. LEVOMEPROMAZINE [Suspect]
  4. GAVISCON [Concomitant]
  5. TEMESTA [Concomitant]
  6. VITAMIN B COMPLEX CAP [Concomitant]
  7. ATIVAN [Concomitant]
     Route: 030
  8. TEMAZEPAM [Concomitant]

REACTIONS (4)
  - MYELOID MATURATION ARREST [None]
  - NEUTROPENIA [None]
  - NEUTROPENIC SEPSIS [None]
  - PLATELET COUNT DECREASED [None]
